FAERS Safety Report 11614139 (Version 1)
Quarter: 2015Q4

REPORT INFORMATION
  Report Type: Spontaneous
  Country: JP (occurrence: JP)
  Receive Date: 20151008
  Receipt Date: 20151008
  Transmission Date: 20160304
  Serious: Yes (Other)
  Sender: FDA-Public Use
  Company Number: JP-009507513-1509JPN013407

PATIENT
  Sex: Female

DRUGS (1)
  1. ORGARAN [Suspect]
     Active Substance: DANAPAROID SODIUM
     Dosage: DAILY DOSE UNKNOWN
     Route: 051

REACTIONS (3)
  - Maternal exposure during pregnancy [Recovered/Resolved]
  - Foetal death [Unknown]
  - Caesarean section [Unknown]
